FAERS Safety Report 7134351-7 (Version None)
Quarter: 2010Q4

REPORT INFORMATION
  Report Type: 
  Country: None (occurrence: None)
  Receive Date: 20101203
  Receipt Date: 20101129
  Transmission Date: 20110411
  Serious: No
  Sender: FDA-Public Use
  Company Number: US-B.I. PHARMACEUTICALS,INC./RIDGEFIELD-2010-BP-13517BP

PATIENT
  Age: 57 Year
  Sex: Female

DRUGS (7)
  1. SPIRIVA [Suspect]
     Indication: CHRONIC OBSTRUCTIVE PULMONARY DISEASE
     Dosage: 18 MCG
     Route: 055
     Dates: start: 20100601
  2. PERCOCET [Concomitant]
     Indication: SPINAL COLUMN STENOSIS
  3. XANAX [Concomitant]
     Indication: SPINAL COLUMN STENOSIS
  4. PAXIL [Concomitant]
     Indication: SPINAL COLUMN STENOSIS
  5. DIFLUCAN [Concomitant]
     Indication: CANDIDIASIS
  6. NYSTATIN [Concomitant]
     Indication: CANDIDIASIS
  7. OXYGEN [Concomitant]
     Indication: CHRONIC OBSTRUCTIVE PULMONARY DISEASE

REACTIONS (1)
  - BLOOD TEST ABNORMAL [None]
